FAERS Safety Report 22227625 (Version 2)
Quarter: 2024Q3

REPORT INFORMATION
  Report Type: Report from Study
  Country: CA (occurrence: CA)
  Receive Date: 20230419
  Receipt Date: 20240904
  Transmission Date: 20241017
  Serious: Yes (Hospitalization)
  Sender: RANBAXY
  Company Number: CA-SUN PHARMACEUTICAL INDUSTRIES LTD-2023R1-385160

PATIENT
  Age: 49 Year
  Sex: Male

DRUGS (8)
  1. OLANZAPINE [Suspect]
     Active Substance: OLANZAPINE
     Indication: Schizophrenia
     Dosage: 35 MILLIGRAM, DAILY
     Route: 048
  2. OLANZAPINE [Suspect]
     Active Substance: OLANZAPINE
     Indication: Schizoaffective disorder
  3. VALPROIC ACID [Suspect]
     Active Substance: VALPROIC ACID
     Indication: Schizoaffective disorder
     Dosage: 1000 MILLIGRAM, DAILY
     Route: 065
  4. VALPROIC ACID [Suspect]
     Active Substance: VALPROIC ACID
     Indication: Schizophrenia
  5. FLUPENTIXOL [Suspect]
     Active Substance: FLUPENTIXOL
     Indication: Schizophrenia
     Dosage: 120 MILLIGRAM
     Route: 065
  6. FLUPENTIXOL [Suspect]
     Active Substance: FLUPENTIXOL
     Indication: Schizoaffective disorder
  7. LOXAPINE [Suspect]
     Active Substance: LOXAPINE
     Indication: Schizophrenia
     Dosage: 300 MILLIGRAM, DAILY
     Route: 065
  8. LOXAPINE [Suspect]
     Active Substance: LOXAPINE
     Indication: Schizoaffective disorder

REACTIONS (1)
  - Drug ineffective [Unknown]
